FAERS Safety Report 21009646 (Version 1)
Quarter: 2022Q2

REPORT INFORMATION
  Report Type: Spontaneous
  Country: US (occurrence: US)
  Receive Date: 20220627
  Receipt Date: 20220627
  Transmission Date: 20220720
  Serious: Yes (Other)
  Sender: FDA-Public Use
  Company Number: US-009507513-2206USA007259

PATIENT
  Age: 72 Year
  Sex: Female

DRUGS (5)
  1. DIFICID [Suspect]
     Active Substance: FIDAXOMICIN
     Indication: Clostridium difficile infection
     Dosage: 200 MG/TWICE PER DAY FOR 10 DAYS
     Route: 048
     Dates: start: 20220604, end: 20220613
  2. VANCOMYCIN [Suspect]
     Active Substance: VANCOMYCIN
     Indication: Clostridium difficile infection
     Dosage: 250 MG/TAKE 4 TIMES PER DAY FOR 14 DAYS
  3. TOPROL XL [Concomitant]
     Active Substance: METOPROLOL SUCCINATE
     Dosage: 50 MG ONCE PER DAY
  4. SYNTHROID [Concomitant]
     Active Substance: LEVOTHYROXINE SODIUM
     Dosage: 75 MG ONCE PER DAY
  5. LORAZEPAM [Concomitant]
     Active Substance: LORAZEPAM
     Dosage: 1 MG NIGHT

REACTIONS (3)
  - Haematochezia [Not Recovered/Not Resolved]
  - Clostridium test positive [Unknown]
  - Nausea [Unknown]

NARRATIVE: CASE EVENT DATE: 20220601
